FAERS Safety Report 4471439-3 (Version None)
Quarter: 2004Q4

REPORT INFORMATION
  Report Type: 
  Country: None (occurrence: None)
  Receive Date: 20041007
  Receipt Date: 20041004
  Transmission Date: 20050328
  Serious: Yes (Other)
  Sender: FDA-Public Use
  Company Number: 002847

PATIENT
  Age: 58 Year
  Sex: Female

DRUGS (7)
  1. MEDROXYPROGESTERONE ACETATE [Suspect]
     Dates: start: 19901201, end: 19960801
  2. PROVERA [Suspect]
     Dates: start: 19901201, end: 19960801
  3. ESTRADERM [Suspect]
     Dates: start: 19900601, end: 19901101
  4. PREMARIN [Suspect]
     Dates: start: 19901201, end: 19990201
  5. ESTRATEST [Suspect]
     Dates: start: 19920401, end: 19961201
  6. CYCRIN [Suspect]
     Dates: start: 19940201, end: 19940801
  7. MEDROXYPROGESTERONE ACETATE [Suspect]
     Dates: start: 19961201, end: 20000301

REACTIONS (2)
  - BREAST CANCER [None]
  - DEAFNESS [None]
